FAERS Safety Report 22072176 (Version 1)
Quarter: 2023Q1

REPORT INFORMATION
  Report Type: Other
  Country: CA (occurrence: CA)
  Receive Date: 20230308
  Receipt Date: 20230308
  Transmission Date: 20230417
  Serious: Yes (Hospitalization, Other)
  Sender: FDA-Public Use
  Company Number: CA-APOTEX-2023AP004125

PATIENT
  Age: 23 Year
  Sex: Female

DRUGS (9)
  1. METHOTREXATE [Suspect]
     Active Substance: METHOTREXATE
     Indication: Arthritis
     Dosage: 25 MILLIGRAM, Q.WK.
     Route: 048
  2. METHOTREXATE [Suspect]
     Active Substance: METHOTREXATE
     Dosage: UNK
     Route: 065
  3. HYDROXYCHLOROQUINE [Suspect]
     Active Substance: HYDROXYCHLOROQUINE
     Indication: Product used for unknown indication
     Dosage: UNK, BID
     Route: 065
  4. AZATHIOPRINE [Suspect]
     Active Substance: AZATHIOPRINE
     Indication: Product used for unknown indication
     Dosage: 150 MILLIGRAM, QD
     Route: 065
  5. CYCLOSPORINE [Suspect]
     Active Substance: CYCLOSPORINE
     Indication: Dermatitis
     Dosage: 100 MILLIGRAM, BID
     Route: 048
  6. MYCOPHENOLIC ACID [Suspect]
     Active Substance: MYCOPHENOLIC ACID
     Indication: Product used for unknown indication
     Dosage: 720 MILLIGRAM, BID
     Route: 048
  7. COSENTYX [Suspect]
     Active Substance: SECUKINUMAB
     Indication: Product used for unknown indication
     Dosage: 300 MILLIGRAM
     Route: 058
  8. USTEKINUMAB [Suspect]
     Active Substance: USTEKINUMAB
     Indication: Product used for unknown indication
     Dosage: 45 MILLIGRAM, ONCE EVERY 2 MONTHS
     Route: 058
  9. PREDNISONE [Concomitant]
     Active Substance: PREDNISONE
     Indication: Arthritis
     Dosage: UNK
     Route: 065

REACTIONS (16)
  - Antinuclear antibody positive [Unknown]
  - Antiphospholipid antibodies positive [Unknown]
  - Condition aggravated [Unknown]
  - Dermatitis psoriasiform [Unknown]
  - Lupus nephritis [Unknown]
  - Pericardial disease [Unknown]
  - Pleurisy [Unknown]
  - Weight decreased [Unknown]
  - Raynaud^s phenomenon [Unknown]
  - Pleural effusion [Unknown]
  - Lymphopenia [Unknown]
  - Toxic shock syndrome streptococcal [Unknown]
  - Herpes zoster reactivation [Unknown]
  - Groin infection [Unknown]
  - Fungal infection [Unknown]
  - Treatment failure [Unknown]
